FAERS Safety Report 20353601 (Version 4)
Quarter: 2022Q2

REPORT INFORMATION
  Report Type: Spontaneous
  Country: CA (occurrence: CA)
  Receive Date: 20220120
  Receipt Date: 20220408
  Transmission Date: 20220721
  Serious: Yes (Hospitalization, Other)
  Sender: FDA-Public Use
  Company Number: CA-CELLTRION INC.-2021CA018560

PATIENT

DRUGS (4)
  1. INFLECTRA [Suspect]
     Active Substance: INFLIXIMAB-DYYB
     Indication: Colitis ulcerative
     Dosage: FIRST DOSE
     Route: 042
     Dates: start: 20211220, end: 20211220
  2. INFLECTRA [Suspect]
     Active Substance: INFLIXIMAB-DYYB
     Dosage: DOSE 2
     Route: 042
     Dates: start: 20211228, end: 20220118
  3. INFLECTRA [Suspect]
     Active Substance: INFLIXIMAB-DYYB
     Dosage: EVERY 6 WEEKS
     Route: 042
  4. INFLECTRA [Suspect]
     Active Substance: INFLIXIMAB-DYYB
     Dosage: IN HOSPITAL
     Route: 042
     Dates: start: 20220118

REACTIONS (10)
  - Gastrointestinal bacterial infection [Unknown]
  - Transfusion [Unknown]
  - Surgery [Recovered/Resolved]
  - Pain [Unknown]
  - COVID-19 [Unknown]
  - Eating disorder [Unknown]
  - Fatigue [Unknown]
  - Weight decreased [Unknown]
  - Condition aggravated [Unknown]
  - Off label use [Unknown]

NARRATIVE: CASE EVENT DATE: 20220108
